FAERS Safety Report 10214254 (Version 1)
Quarter: 2014Q2

REPORT INFORMATION
  Report Type: Spontaneous
  Country: US (occurrence: US)
  Receive Date: 20140603
  Receipt Date: 20140603
  Transmission Date: 20141212
  Serious: No
  Sender: FDA-Public Use
  Company Number: US-PFIZER INC-2014149586

PATIENT
  Age: 73 Year
  Sex: Female
  Weight: 68.93 kg

DRUGS (6)
  1. REVATIO [Suspect]
     Indication: PULMONARY HYPERTENSION
     Dosage: 40 MG, 3X/DAY
  2. DYAZIDE [Concomitant]
     Indication: DIURETIC THERAPY
     Dosage: TRIAMTERENE 37.5 MG/HYDROCHLOROTHIAZIDE 25 MG, DAILY
  3. OMEPRAZOLE [Concomitant]
     Indication: ABDOMINAL DISCOMFORT
     Dosage: 20 MG, DAILY
  4. MAG-OXIDE [Concomitant]
     Dosage: 400 MG, 2X/DAY
  5. POTASSIUM [Concomitant]
     Dosage: 20 MG, 2X/DAY
  6. WARFARIN [Concomitant]
     Dosage: 4 MG, DAILY

REACTIONS (1)
  - Liver disorder [Unknown]
